FAERS Safety Report 10568194 (Version 1)
Quarter: 2014Q4

REPORT INFORMATION
  Report Type: Spontaneous
  Country: US (occurrence: None)
  Receive Date: 20141105
  Receipt Date: 20141105
  Transmission Date: 20150529
  Serious: Yes (Life-Threatening, Hospitalization, Disabling, Other)
  Sender: FDA-Public Use
  Company Number: None

PATIENT
  Age: 50 Year
  Sex: Female
  Weight: 167.83 kg

DRUGS (1)
  1. TORADOL [Suspect]
     Active Substance: KETOROLAC TROMETHAMINE
     Indication: POSTOPERATIVE CARE
     Dates: start: 20140715, end: 20140719

REACTIONS (3)
  - Dialysis [None]
  - Renal failure [None]
  - Blood glucose decreased [None]

NARRATIVE: CASE EVENT DATE: 20140715
